FAERS Safety Report 9500669 (Version 1)
Quarter: 2013Q1

REPORT INFORMATION
  Report Type: Spontaneous
  Country: US (occurrence: None)
  Receive Date: 20130107
  Receipt Date: 20130107
  Transmission Date: 20140127
  Serious: No
  Sender: FDA-Public Use
  Company Number: PHEH2012US023316

PATIENT
  Age: 43 Year
  Sex: Female
  Weight: 106.6 kg

DRUGS (3)
  1. GILENYA [Suspect]
     Indication: MULTIPLE SCLEROSIS
     Route: 048
  2. CITALOPRAM (CITALOPRAM) [Concomitant]
  3. GABAPENTIN (GABAPENTIN) [Concomitant]

REACTIONS (5)
  - Memory impairment [None]
  - Chills [None]
  - Aphagia [None]
  - Abdominal discomfort [None]
  - Nausea [None]
